FAERS Safety Report 9976072 (Version 1)
Quarter: 2014Q1

REPORT INFORMATION
  Report Type: Spontaneous
  Country: US (occurrence: US)
  Receive Date: 20140306
  Receipt Date: 20140306
  Transmission Date: 20141002
  Serious: No
  Sender: FDA-Public Use
  Company Number: US-PFIZER INC-2014063830

PATIENT
  Age: 62 Year
  Sex: Female

DRUGS (7)
  1. PRISTIQ [Suspect]
     Dosage: UNK
  2. MORPHINE SULFATE [Suspect]
     Dosage: UNK
  3. NEOMYCIN SULFATE [Suspect]
     Dosage: UNK
  4. CODEINE [Suspect]
     Dosage: UNK
  5. PHENERGAN [Suspect]
     Dosage: UNK
  6. PROZAC [Suspect]
     Dosage: UNK
  7. CYMBALTA [Suspect]
     Dosage: UNK

REACTIONS (1)
  - Drug hypersensitivity [Unknown]
